FAERS Safety Report 14727859 (Version 1)
Quarter: 2018Q2

REPORT INFORMATION
  Report Type: Report from Study
  Country: FR (occurrence: FR)
  Receive Date: 20180406
  Receipt Date: 20180406
  Transmission Date: 20180711
  Serious: Yes (Death)
  Sender: FDA-Public Use
  Company Number: FR-MYLANLABS-2018M1021588

PATIENT

DRUGS (5)
  1. IDARUBICIN [Suspect]
     Active Substance: IDARUBICIN
     Dosage: 8MG/M2 DAYS 1 TO 3, CONSOLIDATION THERAPY
     Route: 065
  2. CYTARABINE. [Suspect]
     Active Substance: CYTARABINE
     Indication: ACUTE MYELOID LEUKAEMIA
     Dosage: 100MG/M2 DAYS 1 TO 7, STANDARD INDUCTION THERAPY
     Route: 065
  3. CYTARABINE. [Suspect]
     Active Substance: CYTARABINE
     Dosage: 50 MG/M2 DAYS 1 TO 5, CONSOLIDATION THERAPY
     Route: 058
  4. LOMUSTINE. [Suspect]
     Active Substance: LOMUSTINE
     Indication: ACUTE MYELOID LEUKAEMIA
     Dosage: 200 MG/M2 ON DAY 1, STANDARD INDUCTION THERAPY
     Route: 065
  5. IDARUBICIN [Suspect]
     Active Substance: IDARUBICIN
     Indication: ACUTE MYELOID LEUKAEMIA
     Dosage: 8MG/M2 DAYS 1 TO 5, STANDARD INDUCTION THERAPY
     Route: 065

REACTIONS (1)
  - Septic shock [Fatal]
